FAERS Safety Report 19565808 (Version 1)
Quarter: 2021Q3

REPORT INFORMATION
  Report Type: Spontaneous
  Country: US (occurrence: US)
  Receive Date: 20210716
  Receipt Date: 20210716
  Transmission Date: 20211014
  Serious: Yes (Other)
  Sender: FDA-Public Use
  Company Number: US-GLAXOSMITHKLINE-US2021GSK153261

PATIENT
  Sex: Female

DRUGS (1)
  1. ZANTAC [Suspect]
     Active Substance: RANITIDINE HYDROCHLORIDE
     Indication: ABDOMINAL DISCOMFORT
     Dosage: TWICE A DAY, DAILY; CAN^T ENTER THIS ON IT^S FIELD|PRESCRIPTION
     Route: 065
     Dates: start: 198901, end: 199401

REACTIONS (1)
  - Colon cancer [Unknown]
